FAERS Safety Report 5187668-X (Version None)
Quarter: 2006Q4

REPORT INFORMATION
  Report Type: 
  Country: None (occurrence: None)
  Receive Date: 20061213
  Receipt Date: 20061128
  Transmission Date: 20070319
  Serious: Yes (Death, Hospitalization)
  Sender: FDA-Public Use
  Company Number: AZAUS200600459

PATIENT
  Age: 75 Year
  Sex: Male

DRUGS (11)
  1. VIDAZA [Suspect]
     Indication: MYELODYSPLASTIC SYNDROME
     Dosage: 75 MG/M2 (DAILY X 5 DAYS), INTRAVENOUS
     Route: 042
     Dates: start: 20061113, end: 20061117
  2. FORTAZ [Concomitant]
  3. FLEXERIL [Concomitant]
  4. AVODART [Concomitant]
  5. LOTEMAX [Concomitant]
  6. PROTONIX [Concomitant]
  7. ZOCOR [Concomitant]
  8. BENADRYL [Concomitant]
  9. TYLENOL [Concomitant]
  10. VICODIN [Concomitant]
  11. PATANOL [Concomitant]

REACTIONS (5)
  - BACTERIAL INFECTION [None]
  - BRONCHIAL OBSTRUCTION [None]
  - PANCYTOPENIA [None]
  - PNEUMONIA FUNGAL [None]
  - SPUTUM CULTURE POSITIVE [None]
